FAERS Safety Report 25274662 (Version 2)
Quarter: 2025Q2

REPORT INFORMATION
  Report Type: Spontaneous
  Country: US (occurrence: US)
  Receive Date: 20250506
  Receipt Date: 20250619
  Transmission Date: 20250716
  Serious: No
  Sender: NOVARTIS
  Company Number: US-002147023-NVSC2025US073097

PATIENT
  Sex: Female

DRUGS (1)
  1. COSENTYX [Suspect]
     Active Substance: SECUKINUMAB
     Indication: Psoriatic arthropathy
     Route: 065

REACTIONS (5)
  - Disorientation [Unknown]
  - Swelling face [Unknown]
  - Eye swelling [Unknown]
  - Eyelid exfoliation [Unknown]
  - Ocular hyperaemia [Unknown]
